FAERS Safety Report 17602748 (Version 1)
Quarter: 2020Q1

REPORT INFORMATION
  Report Type: Spontaneous
  Country: FR (occurrence: FR)
  Receive Date: 20200330
  Receipt Date: 20200330
  Transmission Date: 20200409
  Serious: Yes (Hospitalization, Other)
  Sender: FDA-Public Use
  Company Number: FR-AUROBINDO-AUR-APL-2020-015365

PATIENT
  Age: 74 Year
  Sex: Female
  Weight: 94 kg

DRUGS (4)
  1. CARBOPLATIN ARROW [Suspect]
     Active Substance: CARBOPLATIN
     Indication: OVARIAN CANCER
     Dosage: 390 MILLIGRAM, CYCLICAL (10 MG/ML)
     Route: 042
     Dates: start: 20200306, end: 20200306
  2. GEMCITABINE. [Concomitant]
     Active Substance: GEMCITABINE
     Indication: OVARIAN CANCER
     Dosage: 1444 MILLIGRAM, CYCLICAL (1000 MG/M2)
     Route: 042
     Dates: start: 20200306, end: 20200306
  3. SOLU-MEDROL [Concomitant]
     Active Substance: METHYLPREDNISOLONE SODIUM SUCCINATE
     Indication: PROPHYLAXIS
     Dosage: 40 MILLIGRAM, CYCLICAL
     Route: 042
     Dates: start: 20200306, end: 20200306
  4. ONDANSETRON [Concomitant]
     Active Substance: ONDANSETRON
     Indication: PROPHYLAXIS OF NAUSEA AND VOMITING
     Dosage: 8 MILLIGRAM, CYCLICAL
     Route: 042
     Dates: start: 20200306, end: 20200306

REACTIONS (4)
  - Loss of consciousness [Recovered/Resolved]
  - Malaise [Recovered/Resolved]
  - Hypotension [Recovered/Resolved]
  - Diarrhoea [Recovered/Resolved]

NARRATIVE: CASE EVENT DATE: 20200306
